FAERS Safety Report 13640636 (Version 2)
Quarter: 2017Q2

REPORT INFORMATION
  Report Type: Report from Study
  Country: AU (occurrence: AU)
  Receive Date: 20170611
  Receipt Date: 20170619
  Transmission Date: 20170830
  Serious: Yes (Death)
  Sender: FDA-Public Use
  Company Number: PHHY2017AU086185

PATIENT
  Age: 80 Year
  Sex: Female

DRUGS (1)
  1. SANDOSTATIN LAR DEPOT [Suspect]
     Active Substance: OCTREOTIDE ACETATE
     Indication: ACROMEGALY
     Dosage: 30 MG, UNK
     Route: 030

REACTIONS (2)
  - Myocardial infarction [Fatal]
  - Rash [Unknown]

NARRATIVE: CASE EVENT DATE: 20170301
